FAERS Safety Report 21703245 (Version 1)
Quarter: 2022Q4

REPORT INFORMATION
  Report Type: Spontaneous
  Country: US (occurrence: US)
  Receive Date: 20221209
  Receipt Date: 20221209
  Transmission Date: 20230113
  Serious: No
  Sender: FDA-Public Use
  Company Number: US-STRIDES ARCOLAB LIMITED-2022SP005124

PATIENT
  Age: 58 Year
  Sex: Female

DRUGS (2)
  1. OLANZAPINE [Suspect]
     Active Substance: OLANZAPINE
     Indication: Agitation
     Dosage: 5 MILLIGRAM, PRN
     Route: 048
  2. ZIPRASIDONE [Concomitant]
     Active Substance: ZIPRASIDONE
     Indication: Agitation
     Dosage: 10 MILLIGRAM, PRN
     Route: 030

REACTIONS (1)
  - Off label use [Unknown]
